FAERS Safety Report 17636297 (Version 4)
Quarter: 2021Q3

REPORT INFORMATION
  Report Type: Report from Study
  Country: PA (occurrence: PA)
  Receive Date: 20200407
  Receipt Date: 20210831
  Transmission Date: 20211014
  Serious: Yes (Other)
  Sender: FDA-Public Use
  Company Number: NVSC2020PA092303

PATIENT
  Age: 70 Year
  Sex: Female

DRUGS (10)
  1. KISQALI [Suspect]
     Active Substance: RIBOCICLIB
     Indication: BREAST CANCER METASTATIC
     Dosage: 600 MG, QD
     Route: 048
     Dates: start: 20190501
  2. ANASTROZOLE. [Suspect]
     Active Substance: ANASTROZOLE
     Indication: BREAST CANCER
     Dosage: 1 MG, QD
     Route: 065
  3. CARVEDILOL. [Suspect]
     Active Substance: CARVEDILOL
     Indication: HYPERTENSION
     Dosage: UNK
     Route: 065
  4. ASPIRIN. [Concomitant]
     Active Substance: ASPIRIN
     Indication: HYPERTENSION
     Dosage: UNK
     Route: 065
  5. AMLODIPINE [Suspect]
     Active Substance: AMLODIPINE BESYLATE
     Indication: HYPERTENSION
     Dosage: UNK
     Route: 065
  6. KISQALI [Suspect]
     Active Substance: RIBOCICLIB
     Indication: METASTASES TO BONE
     Dosage: 200 MG
     Route: 065
  7. ZOLEDRONIC ACID [Suspect]
     Active Substance: ZOLEDRONIC ACID
     Indication: BREAST CANCER
     Dosage: UNK (EVERY 6 MONTHS)
     Route: 065
  8. METFORMIN [Concomitant]
     Active Substance: METFORMIN HYDROCHLORIDE
     Indication: DIABETES MELLITUS
     Dosage: UNK
     Route: 065
  9. NACL [Concomitant]
     Active Substance: SODIUM CHLORIDE
     Indication: PRODUCT USED FOR UNKNOWN INDICATION
     Dosage: (EVERY 6 MONTHS)
     Route: 042
  10. ASPIRIN. [Concomitant]
     Active Substance: ASPIRIN
     Indication: SENSATION OF BLOOD FLOW

REACTIONS (25)
  - Metastasis [Unknown]
  - Inflammation [Recovering/Resolving]
  - Blood glucose abnormal [Unknown]
  - Skin ulcer [Not Recovered/Not Resolved]
  - Breast cancer [Unknown]
  - Vomiting [Recovered/Resolved]
  - Malignant neoplasm progression [Unknown]
  - Pain in extremity [Not Recovered/Not Resolved]
  - Productive cough [Unknown]
  - Hypersomnia [Unknown]
  - Diarrhoea [Recovered/Resolved]
  - Salivary hypersecretion [Unknown]
  - Depression [Recovering/Resolving]
  - Dry skin [Unknown]
  - Weight increased [Unknown]
  - Fatigue [Unknown]
  - Nausea [Unknown]
  - Pyrexia [Unknown]
  - Haemoglobin decreased [Unknown]
  - Blood triglycerides increased [Unknown]
  - Skin weeping [Not Recovered/Not Resolved]
  - Skin discolouration [Unknown]
  - Heat exhaustion [Unknown]
  - Peripheral swelling [Unknown]
  - Decreased appetite [Unknown]

NARRATIVE: CASE EVENT DATE: 201908
